FAERS Safety Report 18159423 (Version 1)
Quarter: 2020Q3

REPORT INFORMATION
  Report Type: Spontaneous
  Country: US (occurrence: US)
  Receive Date: 20200818
  Receipt Date: 20200818
  Transmission Date: 20201103
  Serious: No
  Sender: FDA-Public Use
  Company Number: US-TARO-2019TAR00660

PATIENT
  Age: 71 Year
  Sex: Male
  Weight: 77.1 kg

DRUGS (2)
  1. DESONIDE CREAM USP 0.05% [Suspect]
     Active Substance: DESONIDE
     Indication: FUNGAL INFECTION
     Dosage: UNK, EVERY OTHER DAY
     Route: 061
     Dates: start: 20190702, end: 2019
  2. ECONAZOLE. [Concomitant]
     Active Substance: ECONAZOLE NITRATE

REACTIONS (5)
  - Dry skin [Recovered/Resolved]
  - Skin discolouration [Recovered/Resolved]
  - Off label use [Recovered/Resolved]
  - Inappropriate schedule of product administration [Recovered/Resolved]
  - Skin exfoliation [Recovered/Resolved]

NARRATIVE: CASE EVENT DATE: 2019
